FAERS Safety Report 10263089 (Version 2)
Quarter: 2014Q2

REPORT INFORMATION
  Report Type: Spontaneous
  Country: US (occurrence: US)
  Receive Date: 20140626
  Receipt Date: 20140626
  Transmission Date: 20141212
  Serious: Yes (Other)
  Sender: FDA-Public Use
  Company Number: US-MYLANLABS-2014S1000983

PATIENT
  Age: 53 Year
  Sex: Male

DRUGS (14)
  1. CLOZAPINE TABLETS [Suspect]
     Indication: SCHIZOAFFECTIVE DISORDER
     Route: 048
     Dates: start: 201309, end: 20131220
  2. CLOZAPINE TABLETS [Suspect]
     Indication: SCHIZOAFFECTIVE DISORDER
     Route: 048
     Dates: start: 201309, end: 20131220
  3. CLOZAPINE TABLETS [Suspect]
     Indication: SCHIZOAFFECTIVE DISORDER
     Route: 048
     Dates: start: 20131220, end: 20140108
  4. CLOZAPINE TABLETS [Suspect]
     Indication: SCHIZOAFFECTIVE DISORDER
     Route: 048
     Dates: start: 20131220, end: 20140108
  5. CLOZAPINE TABLETS [Suspect]
     Indication: SCHIZOAFFECTIVE DISORDER
     Route: 048
     Dates: start: 20140110
  6. CLOZAPINE TABLETS [Suspect]
     Indication: SCHIZOAFFECTIVE DISORDER
     Route: 048
     Dates: start: 20140110
  7. LITHIUM [Concomitant]
  8. DEPAKOTE [Concomitant]
  9. CLONAZEPAM [Concomitant]
  10. METOPROLOL [Concomitant]
  11. OMEPRAZOLE [Concomitant]
  12. PRAZOSIN [Concomitant]
  13. SEVELAMER [Concomitant]
  14. ONDANSETRON [Concomitant]
     Indication: NAUSEA

REACTIONS (1)
  - Leukopenia [Recovered/Resolved]
